FAERS Safety Report 6138180-2 (Version None)
Quarter: 2009Q1

REPORT INFORMATION
  Report Type: 
  Country: None (occurrence: None)
  Receive Date: 20090331
  Receipt Date: 20090325
  Transmission Date: 20090719
  Serious: Yes (Other)
  Sender: FDA-Public Use
  Company Number: ZA-ABBOTT-09P-143-0564517-00

PATIENT
  Age: 15 Year
  Sex: Female

DRUGS (1)
  1. EPILIM [Suspect]
     Indication: BIPOLAR DISORDER
     Dosage: 200MG AT BEDTIME
     Route: 048
     Dates: start: 20090314, end: 20090316

REACTIONS (3)
  - AGGRESSION [None]
  - HALLUCINATION [None]
  - SLEEP DISORDER [None]
